FAERS Safety Report 23071900 (Version 1)
Quarter: 2023Q4

REPORT INFORMATION
  Report Type: Spontaneous
  Country: DK (occurrence: DK)
  Receive Date: 20231017
  Receipt Date: 20231017
  Transmission Date: 20240109
  Serious: No
  Sender: FDA-Public Use
  Company Number: DK-TOLMAR, INC.-23DK043243

PATIENT
  Age: 68 Year
  Sex: Male

DRUGS (3)
  1. ELIGARD [Suspect]
     Active Substance: LEUPROLIDE ACETATE
     Indication: Prostate cancer
     Dosage: 45 MILLIGRAM
     Dates: start: 20230926
  2. ELIGARD [Suspect]
     Active Substance: LEUPROLIDE ACETATE
     Dosage: 45 MILLIGRAM
     Dates: start: 20230327
  3. ELIGARD [Suspect]
     Active Substance: LEUPROLIDE ACETATE
     Indication: Prostate cancer
     Dosage: UNK

REACTIONS (3)
  - Intercepted product preparation error [Unknown]
  - Device issue [Unknown]
  - Device leakage [Unknown]
